FAERS Safety Report 16068657 (Version 1)
Quarter: 2019Q1

REPORT INFORMATION
  Report Type: Report from Study
  Country: US (occurrence: US)
  Receive Date: 20190313
  Receipt Date: 20190313
  Transmission Date: 20190418
  Serious: No
  Sender: FDA-Public Use
  Company Number: US-ALEXION PHARMACEUTICALS INC.-A201903636

PATIENT
  Sex: Male

DRUGS (2)
  1. SOLIRIS [Suspect]
     Active Substance: ECULIZUMAB
     Indication: MYASTHENIA GRAVIS
     Dosage: UNK
     Route: 065
  2. ELIQUIS [Suspect]
     Active Substance: APIXABAN
     Indication: ATRIAL FIBRILLATION
     Dosage: UNK
     Route: 065
     Dates: start: 201902

REACTIONS (7)
  - Symptom recurrence [Unknown]
  - Eyelid operation [Unknown]
  - Eyelid ptosis [Unknown]
  - Joint stiffness [Unknown]
  - Asthenia [Unknown]
  - Muscular weakness [Unknown]
  - Balance disorder [Unknown]

NARRATIVE: CASE EVENT DATE: 201902
